FAERS Safety Report 5557731-X (Version None)
Quarter: 2007Q4

REPORT INFORMATION
  Report Type: 
  Country: None (occurrence: None)
  Receive Date: 20071214
  Receipt Date: 20071203
  Transmission Date: 20080405
  Serious: Yes (Other)
  Sender: FDA-Public Use
  Company Number: GB-AMGEN-US255647

PATIENT
  Age: 67 Year
  Sex: Female

DRUGS (9)
  1. ENBREL [Suspect]
     Indication: RHEUMATOID ARTHRITIS
     Dosage: PRE-FILLED SYRINGE (25MG, FREQUENCY UNKNOWN)
     Route: 058
     Dates: end: 20071029
  2. DICLOFENAC [Concomitant]
     Indication: PAIN
     Dosage: 75MG, FREQUENCY UNKNOWN
     Route: 048
  3. DILTIAZEM [Concomitant]
     Indication: HYPERTENSION
  4. LEVOTHYROXINE SODIUM [Concomitant]
     Indication: HYPOTHYROIDISM
     Dosage: 75UG, FREQUENCY UNKNOWN
     Route: 048
  5. FRUSEMIDE [Concomitant]
     Indication: MYOCARDIAL ISCHAEMIA
  6. LAMOTRIGINE [Concomitant]
     Indication: EPILEPSY
     Dosage: 150MG, FREQUENCY UNKNOWN
     Route: 048
  7. PHENYTOIN [Concomitant]
     Indication: EPILEPSY
     Dosage: 100MG, FREQUENCY UNKNOWN
     Route: 048
  8. ASPIRIN [Concomitant]
     Indication: MYOCARDIAL ISCHAEMIA
  9. ENALAPRIL [Concomitant]
     Indication: HYPERTENSION

REACTIONS (3)
  - MALAISE [None]
  - NAUSEA [None]
  - RASH GENERALISED [None]
